FAERS Safety Report 4558154-2 (Version None)
Quarter: 2005Q1

REPORT INFORMATION
  Report Type: 
  Country: None (occurrence: None)
  Receive Date: 20050103
  Receipt Date: 20040921
  Transmission Date: 20050727
  Serious: Yes (Other)
  Sender: FDA-Public Use
  Company Number: 2004UW19707

PATIENT
  Age: 52 Year
  Sex: Male

DRUGS (10)
  1. CRESTOR [Suspect]
     Dosage: 40 MG PO
     Route: 048
     Dates: start: 20040415
  2. LIPITOR [Concomitant]
  3. ZETIA [Concomitant]
  4. INSULIN [Concomitant]
  5. HYDROCHLOROTHIAZIDE [Concomitant]
  6. ZOLOFT [Concomitant]
  7. VERAPAMIL [Concomitant]
  8. XANAX [Concomitant]
  9. GLIPIZIDE [Concomitant]
  10. GLUCOTROL XL [Concomitant]

REACTIONS (1)
  - RHABDOMYOLYSIS [None]
